FAERS Safety Report 18796687 (Version 8)
Quarter: 2021Q3

REPORT INFORMATION
  Report Type: Spontaneous
  Country: US (occurrence: US)
  Receive Date: 20210128
  Receipt Date: 20210816
  Transmission Date: 20211014
  Serious: No
  Sender: FDA-Public Use
  Company Number: US-GLAXOSMITHKLINE-US2021AMR016854

PATIENT
  Sex: Female

DRUGS (4)
  1. ZEJULA [Suspect]
     Active Substance: NIRAPARIB
     Dosage: 200 MG, QD
  2. ZEJULA [Suspect]
     Active Substance: NIRAPARIB
     Dosage: 200 MG, QD
     Route: 048
  3. AVASTIN [Suspect]
     Active Substance: BEVACIZUMAB
     Indication: PRODUCT USED FOR UNKNOWN INDICATION
     Dosage: UNK
  4. ZEJULA [Suspect]
     Active Substance: NIRAPARIB
     Indication: MALIGNANT NEOPLASM OF RENAL PELVIS
     Dosage: 200 MG, QD
     Dates: start: 20210119

REACTIONS (13)
  - Palpitations [Unknown]
  - Fatigue [Unknown]
  - Musculoskeletal pain [Unknown]
  - Loss of personal independence in daily activities [Unknown]
  - Heart rate increased [Recovering/Resolving]
  - Anxiety [Not Recovered/Not Resolved]
  - Dizziness [Unknown]
  - Pain [Not Recovered/Not Resolved]
  - Asthenia [Not Recovered/Not Resolved]
  - Constipation [Not Recovered/Not Resolved]
  - Product use in unapproved indication [Unknown]
  - Pruritus [Unknown]
  - Initial insomnia [Not Recovered/Not Resolved]
